FAERS Safety Report 14018352 (Version 1)
Quarter: 2017Q3

REPORT INFORMATION
  Report Type: Spontaneous
  Country: DE (occurrence: DE)
  Receive Date: 20170928
  Receipt Date: 20170928
  Transmission Date: 20171128
  Serious: Yes (Other)
  Sender: FDA-Public Use
  Company Number: DE-ALVOGEN-2017-ALVOGEN-093632

PATIENT
  Age: 77 Year
  Sex: Male

DRUGS (1)
  1. DOXORUBICIN [Suspect]
     Active Substance: DOXORUBICIN
     Indication: MYCOSIS FUNGOIDES

REACTIONS (3)
  - Treatment failure [Unknown]
  - Palmar-plantar erythrodysaesthesia syndrome [Unknown]
  - Bacterial infection [Unknown]
